FAERS Safety Report 17763249 (Version 4)
Quarter: 2021Q2

REPORT INFORMATION
  Report Type: Report from Study
  Country: None (occurrence: US)
  Receive Date: 20200508
  Receipt Date: 20210429
  Transmission Date: 20210716
  Serious: Yes (Other)
  Sender: FDA-Public Use
  Company Number: US-ABBVIE-20K-163-3395400-00

PATIENT
  Sex: Female

DRUGS (6)
  1. HUMIRA [Suspect]
     Active Substance: ADALIMUMAB
     Indication: CROHN^S DISEASE
     Route: 058
     Dates: start: 20191230
  2. HUMIRA [Suspect]
     Active Substance: ADALIMUMAB
     Dosage: CITRATE FREE
     Route: 058
     Dates: end: 202104
  3. HUMIRA [Suspect]
     Active Substance: ADALIMUMAB
     Route: 058
     Dates: start: 202006, end: 202008
  4. HUMIRA [Suspect]
     Active Substance: ADALIMUMAB
     Dosage: DAY 15
     Route: 058
     Dates: start: 202101, end: 202101
  5. HUMIRA [Suspect]
     Active Substance: ADALIMUMAB
     Dosage: DAY 1
     Route: 058
     Dates: start: 20210114, end: 20210114
  6. MIRALAX [Concomitant]
     Active Substance: POLYETHYLENE GLYCOL 3350
     Indication: PRODUCT USED FOR UNKNOWN INDICATION

REACTIONS (23)
  - Fear [Unknown]
  - Anxiety [Unknown]
  - Abdominal distension [Not Recovered/Not Resolved]
  - Haemorrhoids [Unknown]
  - Decreased appetite [Unknown]
  - Loss of personal independence in daily activities [Unknown]
  - Constipation [Not Recovered/Not Resolved]
  - Breast abscess [Unknown]
  - Hernia [Unknown]
  - Mammoplasty [Unknown]
  - Postoperative wound infection [Unknown]
  - Insomnia [Unknown]
  - Crohn^s disease [Not Recovered/Not Resolved]
  - Rectal haemorrhage [Not Recovered/Not Resolved]
  - Abdominoplasty [Recovered/Resolved]
  - Depressed mood [Unknown]
  - Eczema eyelids [Unknown]
  - Nausea [Not Recovered/Not Resolved]
  - Illness [Unknown]
  - Liposuction [Unknown]
  - Surgery [Unknown]
  - Subcutaneous abscess [Recovered/Resolved]
  - Urinary tract infection [Unknown]

NARRATIVE: CASE EVENT DATE: 2020
